FAERS Safety Report 4972037-5 (Version None)
Quarter: 2006Q2

REPORT INFORMATION
  Report Type: 
  Country: None (occurrence: None)
  Receive Date: 20060413
  Receipt Date: 20060403
  Transmission Date: 20061013
  Serious: Yes (Hospitalization)
  Sender: FDA-Public Use
  Company Number: FR-BRISTOL-MYERS SQUIBB COMPANY-13335278

PATIENT
  Age: 73 Year
  Sex: Male

DRUGS (9)
  1. ELISOR TABS [Suspect]
     Route: 048
  2. COUMADIN [Interacting]
     Route: 048
  3. KARDEGIC [Interacting]
     Route: 048
  4. ALLOPURINOL [Interacting]
     Route: 048
  5. CORDARONE [Interacting]
     Route: 048
  6. FUROSEMIDE [Concomitant]
     Route: 048
  7. AMLOR [Concomitant]
  8. COVERSYL [Concomitant]
  9. LANTUS [Concomitant]

REACTIONS (3)
  - DRUG INTERACTION [None]
  - DRUG TOXICITY [None]
  - EPISTAXIS [None]
